FAERS Safety Report 5996064-4 (Version None)
Quarter: 2008Q4

REPORT INFORMATION
  Report Type: 
  Country: None (occurrence: None)
  Receive Date: 20081212
  Receipt Date: 20081009
  Transmission Date: 20090506
  Serious: No
  Sender: FDA-Public Use
  Company Number: US-ABBOTT-08P-163-0480659-00

PATIENT
  Sex: Female
  Weight: 123.94 kg

DRUGS (9)
  1. HUMIRA [Suspect]
     Indication: RHEUMATOID ARTHRITIS
     Route: 058
     Dates: start: 20080701
  2. METHOTREXATE [Concomitant]
     Indication: ARTHRITIS
     Route: 048
  3. PREDNISONE TAB [Concomitant]
     Indication: ARTHRITIS
     Route: 048
  4. FOLIC ACID [Concomitant]
     Indication: DRUG USE FOR UNKNOWN INDICATION
     Route: 048
  5. METFORMIN HCL [Concomitant]
     Indication: DIABETES MELLITUS
     Route: 048
  6. GLIPIZIDE [Concomitant]
     Indication: DIABETES MELLITUS
     Route: 048
  7. SERTRALINE [Concomitant]
     Indication: ANXIETY
     Route: 048
  8. PAIN MEDICATION [Concomitant]
     Indication: PAIN
     Route: 048
  9. ALBUTEROL SULFATE [Concomitant]
     Indication: BRONCHITIS
     Route: 055

REACTIONS (3)
  - ASTHENIA [None]
  - DRY MOUTH [None]
  - NAUSEA [None]
